FAERS Safety Report 16353600 (Version 3)
Quarter: 2020Q2

REPORT INFORMATION
  Report Type: Report from Study
  Country: US (occurrence: US)
  Receive Date: 20190524
  Receipt Date: 20200630
  Transmission Date: 20200713
  Serious: Yes (Hospitalization)
  Sender: FDA-Public Use
  Company Number: US-PFIZER INC-2019217225

PATIENT
  Age: 12 Year
  Sex: Male
  Weight: 39.3 kg

DRUGS (8)
  1. VINCRISTINE SULFATE. [Suspect]
     Active Substance: VINCRISTINE SULFATE
     Indication: ACUTE LYMPHOCYTIC LEUKAEMIA
     Dosage: 1.9 MILLIGRAM Q 28 DAYS
     Route: 042
     Dates: start: 20181126
  2. METHOTREXATE SODIUM. [Suspect]
     Active Substance: METHOTREXATE SODIUM
     Indication: ACUTE LYMPHOCYTIC LEUKAEMIA
     Dosage: 25 MG, WEEKLY, TABLET
     Route: 048
     Dates: start: 20181009, end: 20190502
  3. METHOTREXATE SODIUM. [Suspect]
     Active Substance: METHOTREXATE SODIUM
     Dosage: 25 MG, WEEKLY, TABLET
     Route: 048
     Dates: start: 20190521
  4. INCB018424 [Suspect]
     Active Substance: RUXOLITINIB
     Dosage: 50 MG, BID 14 DAYS ON, 14 DAYS OFF
     Route: 048
     Dates: start: 20190521
  5. MERCAPTOPURINE. [Suspect]
     Active Substance: MERCAPTOPURINE
     Dosage: 100 MG X 6 DAYS; 75 MG 1 DAY PER WEEK
     Route: 048
     Dates: start: 20190521
  6. METHOTREXATE SODIUM. [Suspect]
     Active Substance: METHOTREXATE SODIUM
     Indication: ACUTE LYMPHOCYTIC LEUKAEMIA
     Dosage: 15 MILLIGRAM EVERY 85 DAYS
     Route: 037
     Dates: start: 20170125
  7. MERCAPTOPURINE. [Suspect]
     Active Substance: MERCAPTOPURINE
     Indication: ACUTE LYMPHOCYTIC LEUKAEMIA
     Dosage: 100 MG X 6 DAYS; 75 MG 1 DAY PER WEEK
     Route: 048
     Dates: start: 20190318, end: 20190502
  8. INCB018424 [Suspect]
     Active Substance: RUXOLITINIB
     Indication: ACUTE LYMPHOCYTIC LEUKAEMIA
     Dosage: 50 MG, BID 14 DAYS ON, 14 DAYS OFF
     Route: 048
     Dates: start: 20181029, end: 20190502

REACTIONS (3)
  - Leukopenia [Recovered/Resolved]
  - Herpes zoster [Recovered/Resolved]
  - Upper respiratory tract infection [Recovered/Resolved]

NARRATIVE: CASE EVENT DATE: 20190502
